FAERS Safety Report 7414753-1 (Version None)
Quarter: 2011Q1

REPORT INFORMATION
  Report Type: 
  Country: None (occurrence: None)
  Receive Date: 20110301
  Receipt Date: 20100923
  Transmission Date: 20110831
  Serious: Yes (Other)
  Sender: FDA-Public Use
  Company Number: US-JNJFOC-20070600166

PATIENT
  Age: 42 Year
  Sex: Female

DRUGS (2)
  1. MOTRIN IB [Suspect]
     Indication: MYALGIA
     Dosage: MONLTHLY AS NEEDED
     Dates: start: 20010101
  2. MOTRIN IB [Suspect]
     Indication: HEADACHE
     Dosage: MONLTHLY AS NEEDED
     Dates: start: 20010101

REACTIONS (3)
  - GASTROOESOPHAGEAL REFLUX DISEASE [None]
  - METAPLASIA [None]
  - INCORRECT DRUG ADMINISTRATION DURATION [None]
